FAERS Safety Report 7249696-X (Version None)
Quarter: 2011Q1

REPORT INFORMATION
  Report Type: 
  Country: None (occurrence: None)
  Receive Date: 20110121
  Receipt Date: 20110121
  Transmission Date: 20110831
  Serious: Yes (Hospitalization)
  Sender: FDA-Public Use
  Company Number: None

PATIENT
  Sex: Female
  Weight: 65 kg

DRUGS (8)
  1. TEMOZOLOMIDE [Suspect]
     Dosage: 4050 MG
     Dates: end: 20110111
  2. PEPCID [Concomitant]
  3. DECADRON [Concomitant]
  4. CELEXA [Concomitant]
  5. DAPSONE [Concomitant]
  6. COUMADIN [Concomitant]
  7. KEPPRA [Concomitant]
  8. ZOFRAN [Concomitant]

REACTIONS (9)
  - ASTHENIA [None]
  - DEEP VEIN THROMBOSIS [None]
  - NEUTROPENIA [None]
  - PLATELET COUNT DECREASED [None]
  - HAEMATOCRIT DECREASED [None]
  - WHITE BLOOD CELL COUNT DECREASED [None]
  - PULMONARY EMBOLISM [None]
  - HAEMOGLOBIN DECREASED [None]
  - HEART RATE INCREASED [None]
